FAERS Safety Report 15408053 (Version 1)
Quarter: 2018Q3

REPORT INFORMATION
  Report Type: Report from Study
  Country: US (occurrence: US)
  Receive Date: 20180920
  Receipt Date: 20180920
  Transmission Date: 20181010
  Serious: Yes (Hospitalization)
  Sender: FDA-Public Use
  Company Number: US-JNJFOC-20180912378

PATIENT
  Age: 60 Year
  Sex: Male

DRUGS (17)
  1. IMBRUVICA [Suspect]
     Active Substance: IBRUTINIB
     Indication: DIFFUSE LARGE B-CELL LYMPHOMA
     Route: 048
     Dates: start: 20180827
  2. HYDROXYZINE [Concomitant]
     Active Substance: HYDROXYZINE HYDROCHLORIDE
  3. FLUCONAZOLE. [Concomitant]
     Active Substance: FLUCONAZOLE
  4. LORATADINE. [Concomitant]
     Active Substance: LORATADINE
  5. VALACYCLOVIR [Concomitant]
     Active Substance: VALACYCLOVIR HYDROCHLORIDE
  6. OMEPRAZOLE. [Concomitant]
     Active Substance: OMEPRAZOLE
  7. ARIPIPRAZOLE. [Concomitant]
     Active Substance: ARIPIPRAZOLE
  8. PROCHLORPERAZINE. [Concomitant]
     Active Substance: PROCHLORPERAZINE
  9. OXYCODONE [Concomitant]
     Active Substance: OXYCODONE
  10. QUINAPRIL. [Concomitant]
     Active Substance: QUINAPRIL
  11. TAMSULOSIN [Concomitant]
     Active Substance: TAMSULOSIN
  12. DRONABINOL. [Concomitant]
     Active Substance: DRONABINOL
  13. TRAZODONE [Concomitant]
     Active Substance: TRAZODONE HYDROCHLORIDE
  14. MEGESTROL [Concomitant]
     Active Substance: MEGESTROL
  15. ONDANSETRON [Concomitant]
     Active Substance: ONDANSETRON
  16. POTASSIUM [Concomitant]
     Active Substance: POTASSIUM
  17. MIRTAZAPINE. [Concomitant]
     Active Substance: MIRTAZAPINE

REACTIONS (9)
  - White blood cell count decreased [Not Recovered/Not Resolved]
  - Malnutrition [Not Recovered/Not Resolved]
  - Nausea [Not Recovered/Not Resolved]
  - Off label use [Unknown]
  - Product use in unapproved indication [Unknown]
  - Contusion [Not Recovered/Not Resolved]
  - Dysgeusia [Not Recovered/Not Resolved]
  - Oral candidiasis [Not Recovered/Not Resolved]
  - Dehydration [Not Recovered/Not Resolved]

NARRATIVE: CASE EVENT DATE: 20180827
